FAERS Safety Report 5666597 (Version 12)
Quarter: 2013Q1

REPORT INFORMATION
  Report Type: Spontaneous
  Country: US (occurrence: US)
  Receive Date: 20040920
  Receipt Date: 20130322
  Transmission Date: 20140127
  Serious: Yes (Life-Threatening, Hospitalization, Other)
  Sender: FDA-Public Use
  Company Number: PHEH2004US08571

PATIENT
  Sex: Female

DRUGS (19)
  1. ZOMETA [Suspect]
     Indication: BREAST CANCER METASTATIC
     Route: 042
     Dates: start: 2001
  2. ZOMETA [Suspect]
     Dates: start: 2002, end: 200405
  3. SEROQUEL [Suspect]
  4. DIAZEPAM [Suspect]
  5. DARVOCET-N [Concomitant]
  6. AROMASIN [Concomitant]
  7. TYLENOL [Concomitant]
     Indication: PAIN
     Dosage: 325 MG,
  8. COGENTIN [Concomitant]
     Indication: DYSTONIA
     Dosage: 2 MG,
     Route: 030
  9. MYLANTA [Concomitant]
     Indication: ABDOMINAL DISCOMFORT
  10. KAOPECTATE [Concomitant]
     Indication: DIARRHOEA
  11. AMBIEN [Concomitant]
  12. VALIUM [Concomitant]
  13. PROTONIX [Concomitant]
  14. CYMBALTA [Concomitant]
  15. CELEBREX [Concomitant]
  16. PERCOCET [Concomitant]
  17. CLINDAMYCIN [Concomitant]
  18. ALBUTEROL [Concomitant]
  19. FLAGYL [Concomitant]

REACTIONS (68)
  - Dysarthria [Unknown]
  - Altered state of consciousness [Unknown]
  - Depressed level of consciousness [Unknown]
  - Excessive granulation tissue [Unknown]
  - Osteorrhagia [Unknown]
  - Oral discharge [Unknown]
  - Gingival erythema [Unknown]
  - Tooth infection [Unknown]
  - Pain in jaw [Unknown]
  - Mass [Unknown]
  - Bone swelling [Unknown]
  - Cardiac valve disease [Unknown]
  - Malaise [Unknown]
  - Bone lesion [Unknown]
  - Epistaxis [Unknown]
  - Uterine leiomyoma [Unknown]
  - Dental caries [Unknown]
  - Soft tissue inflammation [Unknown]
  - Osteonecrosis [Unknown]
  - Suicide attempt [Recovered/Resolved]
  - Bipolar disorder [Unknown]
  - Disturbance in social behaviour [Recovering/Resolving]
  - Self injurious behaviour [Recovered/Resolved]
  - Agitation [Recovering/Resolving]
  - Borderline personality disorder [Unknown]
  - Gastrointestinal disorder [Unknown]
  - Osteonecrosis of jaw [Not Recovered/Not Resolved]
  - Bone disorder [Not Recovered/Not Resolved]
  - Gangrene [Unknown]
  - Essential hypertension [Unknown]
  - Hyperlipidaemia [Unknown]
  - Dental necrosis [Unknown]
  - Coma [Unknown]
  - Blood pressure decreased [Unknown]
  - Tachycardia [Unknown]
  - Electrocardiogram QT prolonged [Unknown]
  - Renal cyst [Unknown]
  - Major depression [Unknown]
  - Pain [Unknown]
  - Mood altered [Unknown]
  - Rhabdomyolysis [Unknown]
  - Renal disorder [Unknown]
  - Urethral disorder [Unknown]
  - Hypokalaemia [Unknown]
  - Asthma [Unknown]
  - Arteriosclerosis coronary artery [Unknown]
  - Generalised anxiety disorder [Unknown]
  - Overdose [Unknown]
  - Metastases to bone [Unknown]
  - Neoplasm malignant [Unknown]
  - Atelectasis [Unknown]
  - Scoliosis [Unknown]
  - Urinary tract infection [Unknown]
  - Left ventricular hypertrophy [Unknown]
  - Transient ischaemic attack [Unknown]
  - Chronic sinusitis [Unknown]
  - Muscular weakness [Unknown]
  - Hypoaesthesia oral [Unknown]
  - Osteomyelitis [Unknown]
  - Convulsion [Unknown]
  - Abdominal pain upper [Unknown]
  - Ulcer [Unknown]
  - Renal cancer [Unknown]
  - Gastric cancer [Unknown]
  - Weight decreased [Unknown]
  - Road traffic accident [Unknown]
  - Head injury [Unknown]
  - Vision blurred [Unknown]
